FAERS Safety Report 21780284 (Version 3)
Quarter: 2023Q1

REPORT INFORMATION
  Report Type: Spontaneous
  Country: GB (occurrence: GB)
  Receive Date: 20221227
  Receipt Date: 20230313
  Transmission Date: 20230418
  Serious: Yes (Other)
  Sender: FDA-Public Use
  Company Number: None

PATIENT
  Sex: Male

DRUGS (13)
  1. AMLODIPINE BESYLATE [Interacting]
     Active Substance: AMLODIPINE BESYLATE
     Indication: Product used for unknown indication
     Dosage: 10 MILLIGRAM, QD (1DAY) (OVER 10 YEARS), TABLET
     Route: 065
  2. ASPIRIN [Interacting]
     Active Substance: ASPIRIN
     Indication: Product used for unknown indication
     Dosage: 75 MILLIGRAM, QD, 1 DAY (OVER 10 YEARS) (DISPERSIBLE TABLET)
     Route: 065
  3. ATORVASTATIN CALCIUM [Interacting]
     Active Substance: ATORVASTATIN CALCIUM
     Indication: Product used for unknown indication
     Dosage: 20 MILLIGRAM, QD (ONE DAY) (OVER 10 YEARS) TABLET
     Route: 065
  4. GABAPENTIN [Interacting]
     Active Substance: GABAPENTIN
     Indication: Product used for unknown indication
     Dosage: 3600 MILLIGRAM, QD 4 DOSES 3 TIMES A DAY EQUAL TO 3,600MG, OVER 10 YEARS CAPSULE (1 DAY)
     Route: 065
     Dates: end: 20191111
  5. GABAPENTIN [Interacting]
     Active Substance: GABAPENTIN
     Dosage: UNK
     Route: 065
  6. ALLOPURINOL [Interacting]
     Active Substance: ALLOPURINOL
     Indication: Product used for unknown indication
     Dosage: 300 MILLIGRAM, QD, OVER 10 YEARS (1 DAY) (TABLET)
     Route: 065
  7. ATENOLOL [Interacting]
     Active Substance: ATENOLOL
     Indication: Product used for unknown indication
     Dosage: 100 MILLIGRAM, QD, OVER 10 YEARS (1 DAY) (TABLET)
     Route: 065
  8. BACLOFEN [Interacting]
     Active Substance: BACLOFEN
     Indication: Product used for unknown indication
     Dosage: 40 MILLIGRAM, QD, OVER 10 YEARS (1 DAY) (TABLET)
     Route: 065
     Dates: end: 20191111
  9. CLONAZEPAM [Interacting]
     Active Substance: CLONAZEPAM
     Indication: Product used for unknown indication
     Dosage: 2 MILLIGRAM, QD, OVER 10 YEARS (1 DAY) (TABLET)
     Route: 065
     Dates: end: 20191111
  10. ISOSORBIDE MONONITRATE [Interacting]
     Active Substance: ISOSORBIDE MONONITRATE
     Indication: Product used for unknown indication
     Dosage: 80 MILLIGRAM, QD (MORNING AND EVENING, OVER 10 YEARS) (1 DAY) (TABLET)
     Route: 065
     Dates: end: 20191111
  11. LISINOPRIL [Interacting]
     Active Substance: LISINOPRIL
     Indication: Product used for unknown indication
     Dosage: 20 MILLIGRAM, QD (OVER 10 YEARS) (1 DAY) (TABLET)
     Route: 065
  12. SERTRALINE [Interacting]
     Active Substance: SERTRALINE HYDROCHLORIDE
     Indication: Product used for unknown indication
     Dosage: 200 MILLIGRAM, QD (MORNING AND EVENING, OVER 10 YEARS) (1 DAY) (TABLET)
     Route: 065
  13. TRAMADOL [Interacting]
     Active Substance: TRAMADOL
     Indication: Product used for unknown indication
     Dosage: 200 MILLIGRAM, QD, ONE DAY (CAPSULE)
     Route: 065
     Dates: end: 20191111

REACTIONS (10)
  - Agitation postoperative [Unknown]
  - Abnormal dreams [Unknown]
  - Confusion postoperative [Unknown]
  - Coordination abnormal [Unknown]
  - Headache [Unknown]
  - Depressed mood [Unknown]
  - Muscle spasms [Unknown]
  - Visual impairment [Unknown]
  - Insomnia [Unknown]
  - Drug interaction [Unknown]
